FAERS Safety Report 8077794-X (Version None)
Quarter: 2012Q1

REPORT INFORMATION
  Report Type: 
  Country: None (occurrence: None)
  Receive Date: 20120127
  Receipt Date: 20120118
  Transmission Date: 20120608
  Serious: Yes (Other)
  Sender: FDA-Public Use
  Company Number: US-PFIZER INC-2011314122

PATIENT
  Sex: Female
  Weight: 111.11 kg

DRUGS (6)
  1. CITALOPRAM [Concomitant]
  2. PREDNISONE [Concomitant]
     Dosage: 5 MG, UNK
  3. ENBREL [Suspect]
     Indication: RHEUMATOID ARTHRITIS
     Dosage: 50 MG, WEEKLY
     Dates: start: 20020101, end: 20110901
  4. SYNTHROID [Concomitant]
  5. DIOVAN HCT [Concomitant]
  6. IBUPROFEN [Suspect]
     Dosage: UNK

REACTIONS (8)
  - BLOOD CREATININE INCREASED [None]
  - DEHYDRATION [None]
  - UPPER RESPIRATORY TRACT INFECTION [None]
  - URINARY TRACT INFECTION [None]
  - RENAL FAILURE ACUTE [None]
  - POLLAKIURIA [None]
  - FATIGUE [None]
  - RHEUMATOID ARTHRITIS [None]
